FAERS Safety Report 8923699 (Version 1)
Quarter: 2012Q4

REPORT INFORMATION
  Report Type: Spontaneous
  Country: UA (occurrence: None)
  Receive Date: 20121115
  Receipt Date: 20121115
  Transmission Date: 20130627
  Serious: Yes (Hospitalization)
  Sender: FDA-Public Use
  Company Number: 1210UKR012006

PATIENT
  Age: 48 Year
  Sex: Male

DRUGS (3)
  1. CEDAX [Suspect]
     Indication: PNEUMONIA
     Route: 048
     Dates: start: 20121019, end: 20121023
  2. TAMIFLU (OSELTAMIVIR PHOSPHATE) [Suspect]
     Indication: PNEUMONIA
     Dates: start: 20121019, end: 20121023
  3. ACETAMINOPHEN, CHLORPHENIRAMINE MALEATE, PHENYLEPHRINE HCL [Suspect]
     Indication: PNEUMONIA
     Dates: start: 20121019, end: 20121023

REACTIONS (2)
  - Hypersensitivity [None]
  - Urticaria [None]
